FAERS Safety Report 4475523-X (Version None)
Quarter: 2004Q4

REPORT INFORMATION
  Report Type: 
  Country: None (occurrence: None)
  Receive Date: 20041015
  Receipt Date: 20040929
  Transmission Date: 20050328
  Serious: Yes (Other)
  Sender: FDA-Public Use
  Company Number: CO-JNJFOC-20041004103

PATIENT
  Age: 13 Year
  Sex: Male

DRUGS (3)
  1. SPORANOX [Suspect]
     Indication: PROPHYLAXIS
     Route: 042
  2. IMIPENEM [Suspect]
  3. VANCOMYCIN [Suspect]

REACTIONS (1)
  - OESOPHAGEAL CANDIDIASIS [None]
